FAERS Safety Report 9868155 (Version 1)
Quarter: 2014Q1

REPORT INFORMATION
  Report Type: Spontaneous
  Country: IT (occurrence: IT)
  Receive Date: 20140204
  Receipt Date: 20140204
  Transmission Date: 20141002
  Serious: Yes (Hospitalization, Other)
  Sender: FDA-Public Use
  Company Number: PHHY2014IT010859

PATIENT
  Age: 30 Year
  Sex: Female
  Weight: 58 kg

DRUGS (9)
  1. CICLOSPORIN [Suspect]
     Indication: IMMUNOSUPPRESSANT DRUG THERAPY
     Dosage: 330 MG, PER DAY
  2. CICLOSPORIN [Suspect]
     Dosage: 270 MG, PER DAY
  3. CICLOSPORIN [Suspect]
     Dosage: 405 MG, PER DAY
  4. AZATHIOPRINE [Suspect]
     Indication: IMMUNOSUPPRESSANT DRUG THERAPY
     Dosage: 50 MG,PER DAY
  5. FUROSEMIDE [Suspect]
     Indication: BLOOD PRESSURE INCREASED
     Dosage: 50 MG, PER DAY
  6. AMLODIPINE [Suspect]
     Indication: BLOOD PRESSURE INCREASED
     Dosage: 2.5 MG, PER DAY
  7. IRON [Suspect]
     Indication: ANAEMIA
  8. SULPHINPYRAZONE [Suspect]
  9. FOLIC ACID [Suspect]

REACTIONS (6)
  - Urinary tract infection [Unknown]
  - Blood uric acid increased [Unknown]
  - Blood pressure increased [Unknown]
  - Premature labour [Unknown]
  - Exposure during pregnancy [Unknown]
  - Anaemia [Unknown]
